FAERS Safety Report 8627616 (Version 2)
Quarter: 2014Q1

REPORT INFORMATION
  Report Type: Spontaneous
  Country: US (occurrence: None)
  Receive Date: 20120323
  Receipt Date: 20130305
  Transmission Date: 20141002
  Serious: Yes (Hospitalization)
  Sender: FDA-Public Use
  Company Number: 163-21880-11071255

PATIENT
  Age: 64 Year
  Sex: Male
  Weight: 86.18 kg

DRUGS (9)
  1. REVLIMID (LENALIDOMIDE) (25 MILLIGRAM, CAPSULES) [Suspect]
     Indication: PLASMA CELL MYELOMA
     Dosage: 25 MG, DAILY X 21 DAYS, PO
     Route: 048
     Dates: start: 20100518
  2. BACTRIM (BACTRIM) (UNKNOWN) [Concomitant]
  3. DECADRON (DEXAMETHASONE) (UNKNOWN) [Concomitant]
  4. LORAZEPAM (LORAZEPAM) (UNKNOWN) (LORAZEPAM) [Concomitant]
  5. SUPER B COMPLEX (BECOSYM FORTE) (UNKNOWN) [Concomitant]
  6. VITAMIN E (TOCOPHEROL) (UNKNOWN) [Concomitant]
  7. OMEPRAZOLE (OMEPRZOLE) (UNKNOWN) [Concomitant]
  8. ACYCLOVIR (ACICLOVIR) (UNKNOWN) [Concomitant]
  9. LOVENOX (HEPARIN-FRACTION, SODIUM SALT) (UNKNOWN) [Concomitant]

REACTIONS (2)
  - Diverticulitis [None]
  - Fatigue [None]
